FAERS Safety Report 17828102 (Version 1)
Quarter: 2020Q2

REPORT INFORMATION
  Report Type: Spontaneous
  Country: US (occurrence: US)
  Receive Date: 20200526
  Receipt Date: 20200526
  Transmission Date: 20200714
  Serious: No
  Sender: FDA-Public Use
  Company Number: None

PATIENT
  Age: 85 Year
  Sex: Male
  Weight: 76 kg

DRUGS (1)
  1. REMDESIVIR 100 MG/20 ML [Suspect]
     Active Substance: REMDESIVIR
     Indication: COVID-19
     Route: 042
     Dates: start: 20200523, end: 20200524

REACTIONS (2)
  - Gallbladder disorder [None]
  - Hepatic enzyme increased [None]

NARRATIVE: CASE EVENT DATE: 20200524
